FAERS Safety Report 7198347-1 (Version None)
Quarter: 2010Q4

REPORT INFORMATION
  Report Type: 
  Country: None (occurrence: None)
  Receive Date: 20101223
  Receipt Date: 20101223
  Transmission Date: 20110411
  Serious: Yes (Hospitalization)
  Sender: FDA-Public Use
  Company Number: None

PATIENT
  Age: 69 Year
  Sex: Female
  Weight: 77.1115 kg

DRUGS (2)
  1. ALENDRONATE SODIUM [Suspect]
     Indication: OSTEOPENIA
     Dosage: 70 MG WEEKLY ORAL
     Route: 048
     Dates: start: 20060101, end: 20100924
  2. ALENDRONATE SODIUM [Suspect]

REACTIONS (1)
  - FEMUR FRACTURE [None]
